FAERS Safety Report 7975773-1 (Version None)
Quarter: 2011Q4

REPORT INFORMATION
  Report Type: 
  Country: None (occurrence: None)
  Receive Date: 20111213
  Receipt Date: 20111005
  Transmission Date: 20120403
  Serious: No
  Sender: FDA-Public Use
  Company Number: US-AMGEN-USASP2011051421

PATIENT
  Sex: Female

DRUGS (9)
  1. POTASSIUM CHLORIDE [Concomitant]
     Dosage: UNK MEQ, UNK
  2. MAGNESIUM SULFATE [Concomitant]
     Dosage: UNK MG, UNK
  3. AMBIEN [Concomitant]
     Dosage: UNK
  4. ENBREL [Suspect]
     Indication: ANKYLOSING SPONDYLITIS
     Dosage: 50 MG, QWK
     Dates: start: 20110701
  5. METOPROLOL TARTRATE [Concomitant]
     Dosage: UNK MG, UNK
  6. ASPIRIN [Concomitant]
     Dosage: UNK MG, UNK
  7. VICTOZA [Concomitant]
     Dosage: UNK
  8. METFORMIN HCL [Concomitant]
     Dosage: UNK
  9. TYLENOL (CAPLET) [Concomitant]
     Dosage: UNK

REACTIONS (4)
  - POOR QUALITY SLEEP [None]
  - HOT FLUSH [None]
  - CHILLS [None]
  - HYPERHIDROSIS [None]
